FAERS Safety Report 9155444 (Version 2)
Quarter: 2013Q1

REPORT INFORMATION
  Report Type: Spontaneous
  Country: US (occurrence: US)
  Receive Date: 20130311
  Receipt Date: 20130319
  Transmission Date: 20140127
  Serious: Yes (Hospitalization)
  Sender: FDA-Public Use
  Company Number: US-PERRIGO-13US002214

PATIENT
  Age: 15 Year
  Sex: Female

DRUGS (4)
  1. MESALAMINE [Suspect]
     Indication: COLITIS ULCERATIVE
     Dosage: 4.8 G, QD
     Route: 065
  2. AZITHROMYCIN [Suspect]
     Indication: ATYPICAL PNEUMONIA
     Dosage: UNK
     Route: 065
  3. AMLODIPINE [Concomitant]
     Indication: HYPERTENSION
     Dosage: UNK
     Route: 065
  4. MERCAPTOPURINE [Concomitant]
     Indication: COLITIS ULCERATIVE
     Dosage: 50 MG, QD
     Route: 065

REACTIONS (14)
  - Renal failure acute [Recovered/Resolved]
  - Tubulointerstitial nephritis [Recovered/Resolved]
  - Respiratory failure [Recovered/Resolved]
  - Productive cough [Recovered/Resolved]
  - Fluid retention [Recovered/Resolved]
  - Oedema peripheral [Recovered/Resolved]
  - Hypertension [Recovered/Resolved]
  - Oliguria [Recovered/Resolved]
  - Tachycardia [Recovered/Resolved]
  - Myalgia [Recovered/Resolved]
  - Blood urea increased [Recovered/Resolved]
  - Blood creatinine increased [Recovered/Resolved]
  - Pyrexia [Recovered/Resolved]
  - Malaise [Recovered/Resolved]
